FAERS Safety Report 7798052-4 (Version None)
Quarter: 2011Q4

REPORT INFORMATION
  Report Type: 
  Country: None (occurrence: None)
  Receive Date: 20111005
  Receipt Date: 20111003
  Transmission Date: 20120403
  Serious: Yes (Other)
  Sender: FDA-Public Use
  Company Number: CHPA2011US13561

PATIENT
  Age: 75 Year
  Sex: Female

DRUGS (3)
  1. FERROUS SULFATE TAB [Suspect]
     Indication: ASTHENIA
     Dosage: 1 DF, QD
     Route: 048
     Dates: start: 20110901, end: 20111003
  2. FERROUS SULFATE TAB [Suspect]
     Indication: FEELING COLD
     Dosage: 1 DF, QD
     Route: 048
  3. FERROUS SULFATE TAB [Suspect]
     Indication: DEHYDRATION

REACTIONS (7)
  - DRUG INEFFECTIVE FOR UNAPPROVED INDICATION [None]
  - FEELING COLD [None]
  - EXPIRED DRUG ADMINISTERED [None]
  - BREAST CANCER [None]
  - DEHYDRATION [None]
  - ASTHENIA [None]
  - BREAST OPERATION [None]
